FAERS Safety Report 20229392 (Version 2)
Quarter: 2022Q1

REPORT INFORMATION
  Report Type: Spontaneous
  Country: US (occurrence: None)
  Receive Date: 20211225
  Receipt Date: 20220217
  Transmission Date: 20220423
  Serious: No
  Sender: FDA-Public Use
  Company Number: 2021A890176

PATIENT
  Age: 73 Year
  Sex: Female
  Weight: 79.4 kg

DRUGS (3)
  1. BYDUREON BCISE [Suspect]
     Active Substance: EXENATIDE
     Indication: Type 2 diabetes mellitus
     Route: 058
  2. INSULIN NOS [Concomitant]
     Active Substance: INSULIN NOS
  3. PLAVIX [Concomitant]
     Active Substance: CLOPIDOGREL BISULFATE

REACTIONS (9)
  - Injection site pain [Recovered/Resolved]
  - Injection site bruising [Recovered/Resolved]
  - Wrong technique in device usage process [Unknown]
  - Product dose omission issue [Unknown]
  - Needle issue [Unknown]
  - Product use issue [Unknown]
  - Device delivery system issue [Unknown]
  - Device difficult to use [Unknown]
  - Device issue [Unknown]

NARRATIVE: CASE EVENT DATE: 20211220
